FAERS Safety Report 20304469 (Version 1)
Quarter: 2022Q1

REPORT INFORMATION
  Report Type: Other
  Country: ES (occurrence: None)
  Receive Date: 20220106
  Receipt Date: 20220106
  Transmission Date: 20220424
  Serious: Yes (Other)
  Sender: FDA-Public Use
  Company Number: ES-ROCHE-2991748

PATIENT

DRUGS (5)
  1. BEVACIZUMAB [Suspect]
     Active Substance: BEVACIZUMAB
     Indication: Cervix carcinoma
     Route: 065
     Dates: start: 20210504
  2. BINTRAFUSP ALFA [Suspect]
     Active Substance: BINTRAFUSP ALFA
     Indication: Cervix carcinoma
     Route: 065
     Dates: start: 20210504
  3. CISPLATIN [Suspect]
     Active Substance: CISPLATIN
     Indication: Cervix carcinoma
     Route: 042
     Dates: start: 20210504
  4. CARBOPLATIN [Suspect]
     Active Substance: CARBOPLATIN
     Indication: Cervix carcinoma
     Dosage: AUC 5
     Route: 042
     Dates: start: 20210504
  5. PACLITAXEL [Suspect]
     Active Substance: PACLITAXEL
     Indication: Cervix carcinoma
     Route: 042
     Dates: start: 20210504

REACTIONS (4)
  - Anaemia [Unknown]
  - Lipase increased [Unknown]
  - Neutrophil count decreased [Unknown]
  - Rash maculo-papular [Unknown]
